FAERS Safety Report 9240265 (Version 1)
Quarter: 2013Q2

REPORT INFORMATION
  Report Type: Spontaneous
  Country: US (occurrence: None)
  Receive Date: 20130418
  Receipt Date: 20130418
  Transmission Date: 20140414
  Serious: Yes (Other)
  Sender: FDA-Public Use
  Company Number: None

PATIENT
  Sex: 0

DRUGS (1)
  1. LUNESTA [Suspect]
     Indication: SLEEP DISORDER
     Dosage: 1 AT BEDTIME
     Route: 048
     Dates: start: 20130410

REACTIONS (4)
  - Memory impairment [None]
  - Abnormal behaviour [None]
  - Aggression [None]
  - Loss of consciousness [None]
